FAERS Safety Report 18775113 (Version 1)
Quarter: 2021Q1

REPORT INFORMATION
  Report Type: Spontaneous
  Country: FR (occurrence: FR)
  Receive Date: 20210122
  Receipt Date: 20210122
  Transmission Date: 20210419
  Serious: Yes (Death, Hospitalization, Other)
  Sender: FDA-Public Use
  Company Number: FR-TEVA-2021-FR-1870990

PATIENT
  Age: 65 Year
  Sex: Male
  Weight: 68 kg

DRUGS (18)
  1. KARDEGIC [Concomitant]
     Active Substance: ASPIRIN DL-LYSINE
     Dosage: 75 MG
     Route: 048
  2. ALIMTA [Suspect]
     Active Substance: PEMETREXED DISODIUM
     Dosage: 900 MG
     Route: 065
     Dates: start: 20200922
  3. ALIMTA [Suspect]
     Active Substance: PEMETREXED DISODIUM
     Dosage: 900 MG
     Route: 065
     Dates: start: 20201013
  4. DUROGESIC [Concomitant]
     Active Substance: FENTANYL
     Dosage: 37 UG EVERY HOUR
     Dates: start: 20201027, end: 20201123
  5. KEYTRUDA [Suspect]
     Active Substance: PEMBROLIZUMAB
     Dosage: 200 MG
     Route: 065
     Dates: start: 20200922
  6. METFORMIN [Concomitant]
     Active Substance: METFORMIN HYDROCHLORIDE
     Dosage: 1000 MG, 3X/DAY FOR YEARS
     Dates: end: 20201120
  7. ALIMTA [Suspect]
     Active Substance: PEMETREXED DISODIUM
     Dosage: 900 MG
     Route: 065
     Dates: start: 20200721
  8. KEYTRUDA [Suspect]
     Active Substance: PEMBROLIZUMAB
     Dosage: 200 MG
     Route: 065
     Dates: start: 20200721
  9. KEYTRUDA [Suspect]
     Active Substance: PEMBROLIZUMAB
     Dosage: UNK
     Route: 065
     Dates: start: 20200408
  10. KEYTRUDA [Suspect]
     Active Substance: PEMBROLIZUMAB
     Dosage: 200 MG
     Route: 042
     Dates: start: 20201103
  11. OXYNORM [Concomitant]
     Active Substance: OXYCODONE HYDROCHLORIDE
     Dosage: 3 MG, 1X/DAY AS NEEDED
     Route: 048
     Dates: start: 20201027, end: 20201123
  12. BISOPROLOL [Concomitant]
     Active Substance: BISOPROLOL
     Dosage: 2.5 MILLIGRAM DAILY; 2.5 MG, 1X/DAY
  13. CARBOPLATIN. [Suspect]
     Active Substance: CARBOPLATIN
     Indication: NON-SMALL CELL LUNG CANCER METASTATIC
     Dosage: UNK
     Route: 065
     Dates: start: 20200408
  14. ALIMTA [Suspect]
     Active Substance: PEMETREXED DISODIUM
     Indication: NON-SMALL CELL LUNG CANCER METASTATIC
     Dosage: UNK
     Route: 065
     Dates: start: 20200408
  15. KEYTRUDA [Suspect]
     Active Substance: PEMBROLIZUMAB
     Indication: NON-SMALL CELL LUNG CANCER METASTATIC
     Dosage: 200 MG
     Route: 065
     Dates: start: 20201013
  16. KEYTRUDA [Suspect]
     Active Substance: PEMBROLIZUMAB
     Dosage: 200 MG
     Route: 042
     Dates: start: 20201103
  17. ALIMTA [Suspect]
     Active Substance: PEMETREXED DISODIUM
     Dosage: 905 MG
     Route: 042
     Dates: start: 20201103
  18. CRESTOR [Concomitant]
     Active Substance: ROSUVASTATIN CALCIUM
     Dosage: 1 DOSAGE FORMS DAILY; 1 DF, 1X/DAY FOR YEARS

REACTIONS (15)
  - General physical health deterioration [Unknown]
  - Hypotension [Unknown]
  - Diarrhoea [Unknown]
  - Pancytopenia [Unknown]
  - Acute kidney injury [Unknown]
  - Septic shock [Fatal]
  - Febrile bone marrow aplasia [Unknown]
  - Dyspnoea exertional [Unknown]
  - Systemic inflammatory response syndrome [Unknown]
  - Proctalgia [Unknown]
  - Asthenia [Unknown]
  - Dysphagia [Unknown]
  - Malignant neoplasm progression [Unknown]
  - Toxicity to various agents [Unknown]
  - Hyperuricaemia [Unknown]

NARRATIVE: CASE EVENT DATE: 20201029
